FAERS Safety Report 6505396-2 (Version None)
Quarter: 2009Q4

REPORT INFORMATION
  Report Type: 
  Country: None (occurrence: None)
  Receive Date: 20091201
  Receipt Date: 20090805
  Transmission Date: 20100525
  Serious: Yes (Hospitalization)
  Sender: FDA-Public Use
  Company Number: 2009SP020441

PATIENT
  Age: 43 Year
  Sex: Female
  Weight: 79.3795 kg

DRUGS (2)
  1. NUVARING [Suspect]
     Indication: MENORRHAGIA
     Dates: start: 20061001, end: 20061201
  2. ADVIL [Concomitant]

REACTIONS (7)
  - DEEP VEIN THROMBOSIS [None]
  - ESSENTIAL HYPERTENSION [None]
  - HEADACHE [None]
  - HEART RATE IRREGULAR [None]
  - PAIN [None]
  - PULMONARY EMBOLISM [None]
  - RHINITIS ALLERGIC [None]
